FAERS Safety Report 4831886-4 (Version None)
Quarter: 2005Q4

REPORT INFORMATION
  Report Type: 
  Country: None (occurrence: None)
  Receive Date: 20051118
  Receipt Date: 20051111
  Transmission Date: 20060501
  Serious: Yes (Hospitalization)
  Sender: FDA-Public Use
  Company Number: US-ROCHE-424526

PATIENT
  Age: 39 Year
  Sex: Male

DRUGS (6)
  1. COPEGUS [Suspect]
     Indication: HEPATITIS C
     Route: 048
     Dates: start: 20050926
  2. PEG-INTRON [Suspect]
     Indication: HEPATITIS C
     Route: 058
     Dates: start: 20050926
  3. AVAPRO [Concomitant]
     Route: 048
  4. HYDROCHLOROTHIAZIDE/METOPROLOL TARTRATE [Concomitant]
     Route: 048
  5. PROZAC [Concomitant]
     Route: 048
  6. TRAZODONE HCL [Concomitant]
     Route: 048

REACTIONS (1)
  - CARBON MONOXIDE POISONING [None]
